FAERS Safety Report 13089421 (Version 8)
Quarter: 2018Q2

REPORT INFORMATION
  Report Type: Spontaneous
  Country: US (occurrence: US)
  Receive Date: 20170105
  Receipt Date: 20180608
  Transmission Date: 20180711
  Serious: Yes (Other)
  Sender: FDA-Public Use
  Company Number: US-PFIZER INC-2016604296

PATIENT
  Age: 58 Year
  Sex: Female
  Weight: 84 kg

DRUGS (4)
  1. SUTENT [Suspect]
     Active Substance: SUNITINIB MALATE
     Dosage: 25 MG, CYCLIC [DAY 1-28 Q 28 DAYS]
     Route: 048
     Dates: end: 20170406
  2. SUTENT [Suspect]
     Active Substance: SUNITINIB MALATE
     Dosage: UNK
  3. SUTENT [Suspect]
     Active Substance: SUNITINIB MALATE
     Indication: RENAL CANCER
     Dosage: 37.5 MG, CYCLIC (DAYS 1-28 Q 42 DAYS)
     Route: 048
     Dates: start: 20161220
  4. SUTENT [Suspect]
     Active Substance: SUNITINIB MALATE
     Dosage: 25 MG, CYCLIC [D 1-28 Q 42 DAYS]
     Route: 048
     Dates: start: 20161220

REACTIONS (25)
  - Fatigue [Unknown]
  - Glossodynia [Unknown]
  - Weight decreased [Unknown]
  - Abdominal pain [Unknown]
  - Nausea [Not Recovered/Not Resolved]
  - Flatulence [Unknown]
  - Dry skin [Unknown]
  - Stomatitis [Unknown]
  - Dysgeusia [Unknown]
  - Vomiting [Unknown]
  - Abdominal discomfort [Unknown]
  - Dry eye [Unknown]
  - Hypotension [Unknown]
  - Gastrooesophageal reflux disease [Unknown]
  - Anxiety [Unknown]
  - Mucosal inflammation [Not Recovered/Not Resolved]
  - Irritable bowel syndrome [Unknown]
  - Dizziness [Unknown]
  - Diarrhoea [Unknown]
  - Depression [Not Recovered/Not Resolved]
  - Abdominal distension [Unknown]
  - Urinary tract infection [Unknown]
  - Dehydration [Unknown]
  - Rhinorrhoea [Unknown]
  - Oral pain [Unknown]

NARRATIVE: CASE EVENT DATE: 20161220
